FAERS Safety Report 11836710 (Version 1)
Quarter: 2015Q4

REPORT INFORMATION
  Report Type: Spontaneous
  Country: US (occurrence: US)
  Receive Date: 20151215
  Receipt Date: 20151215
  Transmission Date: 20160305
  Serious: No
  Sender: FDA-Public Use
  Company Number: US-BANPHARM-20154149

PATIENT
  Age: 66 Year
  Sex: Female

DRUGS (3)
  1. OTHER UNSPECIFIED MEDICATION [Concomitant]
  2. PROGESTERONE CAPSULES 100 MG [Suspect]
     Active Substance: PROGESTERONE
     Dosage: 100 MG; 1X/DAY;
     Route: 048
     Dates: start: 20150724
  3. COMPOUNDED BI-EST [Concomitant]
     Dosage: 1.25 MG; 1X/DAY,

REACTIONS (1)
  - Breast discomfort [Not Recovered/Not Resolved]

NARRATIVE: CASE EVENT DATE: 2015
